FAERS Safety Report 5377829-9 (Version None)
Quarter: 2007Q3

REPORT INFORMATION
  Report Type: 
  Country: None (occurrence: None)
  Receive Date: 20070703
  Receipt Date: 20070622
  Transmission Date: 20080115
  Serious: Yes (Other)
  Sender: FDA-Public Use
  Company Number: JP-PFIZER INC-2007052679

PATIENT
  Age: 40 Year
  Sex: Female

DRUGS (3)
  1. EPIRUBICIN HYDROCHLORIDE SOLUTION, STERILE [Suspect]
     Dosage: DAILY DOSE:100MG
     Route: 042
  2. CYCLOPHOSPHAMIDE [Concomitant]
     Route: 042
  3. FLUOROURACIL [Concomitant]
     Route: 042

REACTIONS (3)
  - ANGIOPATHY [None]
  - PIGMENTATION DISORDER [None]
  - VASCULITIS [None]
